FAERS Safety Report 7482901-3 (Version None)
Quarter: 2011Q2

REPORT INFORMATION
  Report Type: 
  Country: None (occurrence: None)
  Receive Date: 20110516
  Receipt Date: 20110506
  Transmission Date: 20111010
  Serious: Yes (Hospitalization)
  Sender: FDA-Public Use
  Company Number: JP-WATSON-2011-05102

PATIENT
  Age: 37 Year
  Sex: Male

DRUGS (2)
  1. PREDNISOLONE [Suspect]
     Indication: SYSTEMIC LUPUS ERYTHEMATOSUS
     Dosage: 40 MG, DAILY
     Route: 065
  2. PREDNISOLONE [Suspect]
     Indication: MENINGITIS

REACTIONS (2)
  - AORTIC ANEURYSM [None]
  - AORTIC VALVE INCOMPETENCE [None]
